FAERS Safety Report 11054569 (Version 1)
Quarter: 2015Q2

REPORT INFORMATION
  Report Type: Spontaneous
  Country: AU (occurrence: AU)
  Receive Date: 20150422
  Receipt Date: 20150422
  Transmission Date: 20150821
  Serious: Yes (Hospitalization)
  Sender: FDA-Public Use
  Company Number: AU-ACTELION-A-CH2015-116220

PATIENT
  Sex: Male

DRUGS (1)
  1. OPSUMIT [Suspect]
     Active Substance: MACITENTAN
     Indication: PULMONARY ARTERIAL HYPERTENSION
     Dosage: UNK
     Route: 048
     Dates: start: 201412

REACTIONS (5)
  - Pulmonary arterial hypertension [Unknown]
  - Disease progression [Unknown]
  - Gastrointestinal haemorrhage [Unknown]
  - Cardiac arrest [Unknown]
  - Melaena [Unknown]

NARRATIVE: CASE EVENT DATE: 201501
